FAERS Safety Report 4702754-3 (Version None)
Quarter: 2005Q2

REPORT INFORMATION
  Report Type: 
  Country: None (occurrence: None)
  Receive Date: 20050624
  Receipt Date: 20050429
  Transmission Date: 20051028
  Serious: No
  Sender: FDA-Public Use
  Company Number: 2005BI008934

PATIENT
  Age: 43 Year
  Sex: Female
  Weight: 43.5453 kg

DRUGS (1)
  1. NATALIZUMAB [Suspect]
     Indication: MULTIPLE SCLEROSIS
     Dosage: 300 MG;QM;IV
     Route: 042
     Dates: start: 20050118, end: 20050201

REACTIONS (2)
  - BRONCHITIS [None]
  - URINARY TRACT INFECTION [None]
